FAERS Safety Report 5525832-8 (Version None)
Quarter: 2007Q4

REPORT INFORMATION
  Report Type: 
  Country: None (occurrence: None)
  Receive Date: 20071126
  Receipt Date: 20071122
  Transmission Date: 20080405
  Serious: Yes (Death, Other)
  Sender: FDA-Public Use
  Company Number: PHHO2007JP16395

PATIENT
  Age: 20 Year
  Sex: Male

DRUGS (5)
  1. PREDONINE [Concomitant]
     Indication: ACUTE LYMPHOCYTIC LEUKAEMIA
  2. DAUNOMYCIN [Concomitant]
     Indication: ACUTE LYMPHOCYTIC LEUKAEMIA
  3. ONCOVIN [Concomitant]
  4. CYCLOPHOSPHAMIDE [Concomitant]
     Indication: ACUTE LYMPHOCYTIC LEUKAEMIA
  5. GLEEVEC [Suspect]
     Indication: ACUTE LYMPHOCYTIC LEUKAEMIA
     Dosage: 600 MG, QD
     Route: 048
     Dates: start: 20070904, end: 20070905

REACTIONS (4)
  - LUNG DISORDER [None]
  - NEUTROPENIA [None]
  - PNEUMONIA ASPIRATION [None]
  - SEPSIS [None]
